FAERS Safety Report 6685388-3 (Version None)
Quarter: 2010Q2

REPORT INFORMATION
  Report Type: 
  Country: None (occurrence: None)
  Receive Date: 20100416
  Receipt Date: 20100405
  Transmission Date: 20101027
  Serious: Yes (Other)
  Sender: FDA-Public Use
  Company Number: ES-AMGEN-US404180

PATIENT
  Age: 38 Year
  Sex: Female
  Weight: 105 kg

DRUGS (1)
  1. ENBREL [Suspect]
     Indication: PSORIASIS
     Route: 065
     Dates: start: 20090801, end: 20091101

REACTIONS (1)
  - POLYNEUROPATHY [None]
